FAERS Safety Report 9115759 (Version 1)
Quarter: 2013Q1

REPORT INFORMATION
  Report Type: Spontaneous
  Country: IT (occurrence: None)
  Receive Date: 20130129
  Receipt Date: 20130129
  Transmission Date: 20140127
  Serious: Yes (Other)
  Sender: FDA-Public Use
  Company Number: GER/ITL/13/0027542

PATIENT
  Age: 66 Year
  Sex: Male

DRUGS (1)
  1. ATORVASTATIN (ATORVASTATIN) [Suspect]
     Indication: ACUTE MYOCARDIAL INFARCTION
     Route: 048
     Dates: start: 20120924, end: 20121231

REACTIONS (2)
  - Drug ineffective [None]
  - Product substitution issue [None]
